FAERS Safety Report 12947429 (Version 2)
Quarter: 2017Q1

REPORT INFORMATION
  Report Type: Spontaneous
  Country: US (occurrence: US)
  Receive Date: 20161116
  Receipt Date: 20170105
  Transmission Date: 20170428
  Serious: Yes (Other)
  Sender: FDA-Public Use
  Company Number: US-PFIZER INC-2016530474

PATIENT
  Sex: Male
  Weight: 93 kg

DRUGS (17)
  1. PANTOPRAZOLE [Concomitant]
     Active Substance: PANTOPRAZOLE SODIUM
     Indication: DYSPEPSIA
     Dosage: UNK
  2. HYDROCODONE [Concomitant]
     Active Substance: HYDROCODONE
     Indication: PAIN
     Dosage: 5 MG, 4X/DAY
  3. HYDROCODONE [Concomitant]
     Active Substance: HYDROCODONE
     Dosage: 10 MG, 4X/DAY
  4. HYDROCODONE [Concomitant]
     Active Substance: HYDROCODONE
     Dosage: 10 MG, 5X/DAY
  5. LYRICA [Suspect]
     Active Substance: PREGABALIN
     Indication: HEADACHE
     Dosage: 100 MG, 3X/DAY
  6. LYRICA [Suspect]
     Active Substance: PREGABALIN
     Dosage: 200 MG, 3X/DAY
  7. METHOCARBAMOL. [Concomitant]
     Active Substance: METHOCARBAMOL
     Indication: MUSCLE RELAXANT THERAPY
     Dosage: 750 MG, 3X/DAY
     Dates: start: 2004
  8. LYRICA [Suspect]
     Active Substance: PREGABALIN
     Dosage: 225 MG, 3X/DAY
  9. HYDROCODONE [Concomitant]
     Active Substance: HYDROCODONE
     Dosage: 7.5 MG, 6X/DAY
  10. LYRICA [Suspect]
     Active Substance: PREGABALIN
     Dosage: 200 MG, 3X/DAY
  11. PANTOPRAZOLE [Concomitant]
     Active Substance: PANTOPRAZOLE SODIUM
     Indication: BURN OESOPHAGEAL
  12. LYRICA [Suspect]
     Active Substance: PREGABALIN
     Dosage: 200 MG, 3X/DAY
  13. LISINOPRIL. [Concomitant]
     Active Substance: LISINOPRIL
     Indication: HYPERTENSION
     Dosage: 20 MG, 1X/DAY
  14. CELEBREX [Concomitant]
     Active Substance: CELECOXIB
     Dosage: 200 MG, 1X/DAY
  15. LYRICA [Suspect]
     Active Substance: PREGABALIN
     Indication: NEURALGIA
     Dosage: 75 MG, 3X/DAY
     Dates: start: 2005
  16. ALLEGRA D-12 HOUR [Concomitant]
     Active Substance: FEXOFENADINE HYDROCHLORIDE\PSEUDOEPHEDRINE HYDROCHLORIDE
     Indication: HYPERSENSITIVITY
     Dosage: 60-120 MG , 2X/DAY
  17. CELECOXIB. [Concomitant]
     Active Substance: CELECOXIB
     Dosage: 200 MG, 1X/DAY

REACTIONS (12)
  - Neuralgia [Unknown]
  - Haemorrhage [Unknown]
  - Burning sensation [Unknown]
  - Headache [Unknown]
  - Insomnia [Unknown]
  - Pruritus [Unknown]
  - Drug dose omission [Unknown]
  - Overdose [Unknown]
  - Intentional product misuse [Unknown]
  - Condition aggravated [Unknown]
  - Scar [Unknown]
  - Drug ineffective for unapproved indication [Unknown]

NARRATIVE: CASE EVENT DATE: 2009
